FAERS Safety Report 24216333 (Version 1)
Quarter: 2024Q3

REPORT INFORMATION
  Report Type: Spontaneous
  Country: US (occurrence: US)
  Receive Date: 20240816
  Receipt Date: 20240816
  Transmission Date: 20241017
  Serious: No
  Sender: ELI LILLY AND CO
  Company Number: US-ELI_LILLY_AND_COMPANY-US202408008798

PATIENT
  Sex: Male

DRUGS (8)
  1. ZEPBOUND [Suspect]
     Active Substance: TIRZEPATIDE
     Indication: Weight control
     Dosage: UNK UNK, UNKNOWN
     Route: 065
  2. ZEPBOUND [Suspect]
     Active Substance: TIRZEPATIDE
     Indication: Weight control
     Dosage: UNK UNK, UNKNOWN
     Route: 065
  3. ZEPBOUND [Suspect]
     Active Substance: TIRZEPATIDE
     Indication: Weight control
     Dosage: UNK UNK, UNKNOWN
     Route: 065
  4. ZEPBOUND [Suspect]
     Active Substance: TIRZEPATIDE
     Indication: Weight control
     Dosage: UNK UNK, UNKNOWN
     Route: 065
  5. ZEPBOUND [Suspect]
     Active Substance: TIRZEPATIDE
     Dosage: 15 MG, UNKNOWN
     Route: 065
  6. ZEPBOUND [Suspect]
     Active Substance: TIRZEPATIDE
     Dosage: 15 MG, UNKNOWN
     Route: 065
  7. ZEPBOUND [Suspect]
     Active Substance: TIRZEPATIDE
     Dosage: 15 MG, UNKNOWN
     Route: 065
  8. ZEPBOUND [Suspect]
     Active Substance: TIRZEPATIDE
     Dosage: 15 MG, UNKNOWN
     Route: 065

REACTIONS (2)
  - Lipase increased [Unknown]
  - Amylase increased [Unknown]
